FAERS Safety Report 7137986-0 (Version None)
Quarter: 2010Q4

REPORT INFORMATION
  Report Type: 
  Country: None (occurrence: None)
  Receive Date: 20101118
  Receipt Date: 20101110
  Transmission Date: 20110411
  Serious: Yes (Hospitalization, Other)
  Sender: FDA-Public Use
  Company Number: 20109634

PATIENT
  Age: 38 Year
  Sex: Male
  Weight: 70.2 kg

DRUGS (2)
  1. BACLOFEN [Suspect]
     Indication: MUSCLE SPASTICITY
     Dosage: SEE B5 MCG, DAILY, INTRATHECAL
     Route: 037
  2. TERNALIN [Concomitant]

REACTIONS (4)
  - DEVICE DISLOCATION [None]
  - MEDICAL DEVICE COMPLICATION [None]
  - MEDICAL DEVICE ENTRAPMENT [None]
  - SUBCUTANEOUS HAEMATOMA [None]
